FAERS Safety Report 25890397 (Version 2)
Quarter: 2025Q4

REPORT INFORMATION
  Report Type: Spontaneous
  Country: US (occurrence: US)
  Receive Date: 20251007
  Receipt Date: 20251007
  Transmission Date: 20260118
  Serious: Yes (Life-Threatening, Hospitalization, Other)
  Sender: GILEAD
  Company Number: US-GILEAD-2025-0731071

PATIENT
  Age: 69 Year
  Sex: Male
  Weight: 69 kg

DRUGS (1)
  1. YESCARTA [Suspect]
     Active Substance: AXICABTAGENE CILOLEUCEL
     Indication: Follicular lymphoma refractory
     Dosage: 68 ML, ONCE
     Route: 041
     Dates: start: 20250604, end: 20250604

REACTIONS (3)
  - Immune effector cell-associated neurotoxicity syndrome [Recovered/Resolved]
  - Cytokine release syndrome [Unknown]
  - Conjunctival haemorrhage [Unknown]

NARRATIVE: CASE EVENT DATE: 20250610
